FAERS Safety Report 7713929-3 (Version None)
Quarter: 2011Q3

REPORT INFORMATION
  Report Type: 
  Country: None (occurrence: None)
  Receive Date: 20110826
  Receipt Date: 20110824
  Transmission Date: 20111222
  Serious: Yes (Hospitalization)
  Sender: FDA-Public Use
  Company Number: CA-ABBOTT-11P-028-0849244-00

PATIENT
  Sex: Male
  Weight: 63.56 kg

DRUGS (7)
  1. HUMIRA [Suspect]
     Indication: CROHN'S DISEASE
     Route: 058
     Dates: start: 20110321
  2. FOLIC ACID [Concomitant]
     Indication: CROHN'S DISEASE
     Route: 048
     Dates: start: 20110301
  3. VITAMIN D [Concomitant]
     Indication: CROHN'S DISEASE
     Route: 048
     Dates: start: 20110301
  4. BENZACLIN [Concomitant]
     Indication: ACNE
     Route: 061
     Dates: start: 20110301
  5. METHOTREXATE [Concomitant]
     Indication: CROHN'S DISEASE
     Route: 058
     Dates: start: 20110301
  6. CALCIUM B12 [Concomitant]
     Indication: CROHN'S DISEASE
     Route: 048
     Dates: start: 20110301
  7. BETADERM [Concomitant]
     Indication: CROHN'S DISEASE
     Route: 061
     Dates: start: 20110301

REACTIONS (3)
  - ABDOMINAL PAIN LOWER [None]
  - ABDOMINAL PAIN [None]
  - SYNOVIAL CYST [None]
